FAERS Safety Report 7821197-7 (Version None)
Quarter: 2011Q4

REPORT INFORMATION
  Report Type: 
  Country: None (occurrence: None)
  Receive Date: 20111018
  Receipt Date: 20111006
  Transmission Date: 20120403
  Serious: Yes (Other)
  Sender: FDA-Public Use
  Company Number: BR-PFIZER INC-2011239718

PATIENT
  Age: 47 Year
  Sex: Female

DRUGS (1)
  1. XALATAN [Suspect]
     Route: 047

REACTIONS (3)
  - HYPERSENSITIVITY [None]
  - HEADACHE [None]
  - INTRAOCULAR PRESSURE INCREASED [None]
